FAERS Safety Report 23851729 (Version 1)
Quarter: 2024Q2

REPORT INFORMATION
  Report Type: Other
  Country: US (occurrence: None)
  Receive Date: 20240514
  Receipt Date: 20240514
  Transmission Date: 20240716
  Serious: Yes (Other)
  Sender: FDA-Public Use
  Company Number: US-ROCHE-3325120

PATIENT
  Age: 35 Year
  Sex: Female

DRUGS (2)
  1. OCREVUS [Suspect]
     Active Substance: OCRELIZUMAB
     Indication: Relapsing multiple sclerosis
     Dosage: 600 MG EVERY 6 MONTH?LAST INFUSION WAS 22-JUN-2022
     Route: 042
     Dates: start: 20200918
  2. OCREVUS [Suspect]
     Active Substance: OCRELIZUMAB
     Dosage: ONE BAG
     Route: 042
     Dates: start: 2019

REACTIONS (11)
  - Thrombosis [Recovered/Resolved]
  - Urinary tract infection [Recovered/Resolved]
  - Amnesia [Recovered/Resolved]
  - Nasopharyngitis [Recovered/Resolved]
  - COVID-19 [Recovered/Resolved]
  - Memory impairment [Recovered/Resolved]
  - Rhinitis [Unknown]
  - Anxiety [Not Recovered/Not Resolved]
  - Vitamin D decreased [Not Recovered/Not Resolved]
  - Varicose vein [Unknown]
  - Off label use [Unknown]

NARRATIVE: CASE EVENT DATE: 20210101
